FAERS Safety Report 10447639 (Version 1)
Quarter: 2014Q3

REPORT INFORMATION
  Report Type: Spontaneous
  Country: US (occurrence: US)
  Receive Date: 20140911
  Receipt Date: 20140911
  Transmission Date: 20150326
  Serious: No
  Sender: FDA-Public Use
  Company Number: US-PFIZER INC-2014249037

PATIENT
  Age: 54 Year
  Sex: Male
  Weight: 91.16 kg

DRUGS (3)
  1. GABAPENTIN. [Suspect]
     Active Substance: GABAPENTIN
     Dosage: DOSAGE INCREASED WITH VARIATIONS
     Route: 048
     Dates: start: 2013, end: 2013
  2. GABAPENTIN. [Suspect]
     Active Substance: GABAPENTIN
     Indication: BACK PAIN
     Dosage: 400 MG (ONE CAPSULE), 2X/DAY
     Route: 048
     Dates: start: 20130102
  3. GABAPENTIN. [Suspect]
     Active Substance: GABAPENTIN
     Dosage: 800 MG, 2X/DAY (TWO AT MORNING AND TWO AT NIGHT)
     Route: 048
     Dates: end: 20130602

REACTIONS (3)
  - Intentional product misuse [Unknown]
  - Off label use [Unknown]
  - Drug ineffective [Unknown]

NARRATIVE: CASE EVENT DATE: 2013
